FAERS Safety Report 14686365 (Version 1)
Quarter: 2018Q1

REPORT INFORMATION
  Report Type: Spontaneous
  Country: US (occurrence: US)
  Receive Date: 20180326
  Receipt Date: 20180326
  Transmission Date: 20180509
  Serious: Yes (Other)
  Sender: FDA-Public Use
  Company Number: None

PATIENT
  Age: 45 Year
  Sex: Female
  Weight: 76.9 kg

DRUGS (2)
  1. GLATIRAMERE ACETATE 40MG [Suspect]
     Active Substance: GLATIRAMER ACETATE
     Indication: MULTIPLE SCLEROSIS
     Route: 058
     Dates: start: 201801
  2. GLATIRAMERE ACETATE 40MG [Suspect]
     Active Substance: GLATIRAMER ACETATE
     Indication: MULTIPLE SCLEROSIS
     Route: 058
     Dates: start: 20180322

REACTIONS (2)
  - Influenza like illness [None]
  - Palpitations [None]

NARRATIVE: CASE EVENT DATE: 20180322
